FAERS Safety Report 8954546 (Version 6)
Quarter: 2013Q2

REPORT INFORMATION
  Report Type: Spontaneous
  Country: US (occurrence: US)
  Receive Date: 20121207
  Receipt Date: 20130502
  Transmission Date: 20140414
  Serious: Yes (Disabling)
  Sender: FDA-Public Use
  Company Number: US-PERRIGO-12US010284

PATIENT
  Age: 84 Year
  Sex: Female
  Weight: 48.98 kg

DRUGS (8)
  1. ACETAMINOPHEN-ASPIRIN-CAFFEINE 374 [Suspect]
     Indication: HEADACHE
     Dosage: 2 TABLETS, QD
     Route: 048
     Dates: start: 20121120, end: 20121121
  2. ACETAMINOPHEN-ASPIRIN-CAFFEINE 374 [Suspect]
     Indication: PAIN
     Dosage: 2 TABLETS IN 2 HOURS
     Route: 048
     Dates: start: 20121017, end: 20121017
  3. ACETAMINOPHEN-ASPIRIN-CAFFEINE 374 [Suspect]
     Indication: CHEST PAIN
  4. TRAMADOL [Concomitant]
     Indication: PAIN
     Dosage: UNKNOWN, UNKNOWN
     Route: 048
  5. CALCIUM [Concomitant]
     Indication: SUPPLEMENTATION THERAPY
     Dosage: UNKNOWN, UNKNOWN
     Route: 048
  6. VITAMINS [Concomitant]
     Indication: SUPPLEMENTATION THERAPY
     Dosage: UNKNOWN, UNKNOWN
     Route: 048
  7. PROPANOLOL [Concomitant]
     Indication: HYPERTENSION
     Dosage: 120 MG, UNKNOWN
     Route: 048
     Dates: start: 2011
  8. TRAZODONE [Concomitant]
     Indication: INSOMNIA
     Dosage: UNKNOWN, UNKNOWN
     Route: 048
     Dates: start: 2011

REACTIONS (5)
  - Tinnitus [Not Recovered/Not Resolved]
  - Nausea [Recovering/Resolving]
  - Malaise [Recovering/Resolving]
  - Insomnia [Unknown]
  - Drug ineffective for unapproved indication [Unknown]
